FAERS Safety Report 9869176 (Version 2)
Quarter: 2014Q1

REPORT INFORMATION
  Report Type: Spontaneous
  Country: DE (occurrence: DE)
  Receive Date: 20140205
  Receipt Date: 20140318
  Transmission Date: 20141002
  Serious: Yes (Hospitalization)
  Sender: FDA-Public Use
  Company Number: DE-BRISTOL-MYERS SQUIBB COMPANY-20099412

PATIENT
  Age: 85 Year
  Sex: Female
  Weight: 65 kg

DRUGS (1)
  1. ELIQUIS [Suspect]
     Dosage: DOSE REDUCED TO ONCE DAILY?23JAN2014,24-JAN-2014 ELIQUIS DOSE WAS INCREASED TO 2.5 MG TWICE DAILY

REACTIONS (3)
  - Facial bones fracture [Unknown]
  - Contusion [Unknown]
  - Fall [Unknown]
